FAERS Safety Report 10743984 (Version 1)
Quarter: 2015Q1

REPORT INFORMATION
  Report Type: Spontaneous
  Country: US (occurrence: US)
  Receive Date: 20150128
  Receipt Date: 20150128
  Transmission Date: 20150721
  Serious: No
  Sender: FDA-Public Use
  Company Number: US-BIOGENIDEC-2015BI007816

PATIENT
  Age: 56 Year
  Sex: Male

DRUGS (1)
  1. TECFIDERA [Suspect]
     Active Substance: DIMETHYL FUMARATE
     Indication: RELAPSING-REMITTING MULTIPLE SCLEROSIS
     Route: 048
     Dates: start: 20130830

REACTIONS (6)
  - Adverse drug reaction [Unknown]
  - Injection site rash [Unknown]
  - Drug dose omission [Unknown]
  - Blood pressure increased [Unknown]
  - Dysphonia [Unknown]
  - Rash macular [Unknown]

NARRATIVE: CASE EVENT DATE: 20150114
